FAERS Safety Report 7141271-0 (Version None)
Quarter: 2010Q4

REPORT INFORMATION
  Report Type: 
  Country: None (occurrence: None)
  Receive Date: 20101207
  Receipt Date: 20101130
  Transmission Date: 20110411
  Serious: Yes (Other)
  Sender: FDA-Public Use
  Company Number: US-BAYER-2010-000306

PATIENT
  Age: 37 Year
  Sex: Female

DRUGS (1)
  1. MIRENA [Suspect]
     Indication: CONTRACEPTION
     Dosage: 20 A?G, CONTINUOUS
     Route: 015
     Dates: start: 20080926, end: 20101117

REACTIONS (2)
  - DEVICE DISLOCATION [None]
  - HAEMORRHAGE [None]
